FAERS Safety Report 19100145 (Version 1)
Quarter: 2021Q2

REPORT INFORMATION
  Report Type: Spontaneous
  Country: IE (occurrence: IE)
  Receive Date: 20210407
  Receipt Date: 20210407
  Transmission Date: 20210717
  Serious: Yes (Life-Threatening, Hospitalization, Other)
  Sender: FDA-Public Use
  Company Number: IE-AUROBINDO-AUR-APL-2021-013459

PATIENT
  Age: 31 Year
  Sex: Female

DRUGS (10)
  1. OLANZAPINE. [Suspect]
     Active Substance: OLANZAPINE
     Dosage: OLANZAPINE 5 MG TWICE DAILY PRN
     Route: 065
     Dates: start: 201912
  2. LORAZEPAM. [Concomitant]
     Active Substance: LORAZEPAM
     Indication: GENERALISED ANXIETY DISORDER
     Dosage: TWICE DAILY PRN
     Route: 065
     Dates: start: 201910, end: 202001
  3. QUETIAPINE. [Concomitant]
     Active Substance: QUETIAPINE
     Indication: BIPOLAR DISORDER
     Dosage: TITRATED UP TO 50 MG MANE
     Route: 065
     Dates: start: 201911, end: 202001
  4. OLANZAPINE. [Suspect]
     Active Substance: OLANZAPINE
     Dosage: 5 MILLIGRAM, ONCE A DAY
     Route: 065
     Dates: start: 201912, end: 202001
  5. QUETIAPINE. [Concomitant]
     Active Substance: QUETIAPINE
     Dosage: TITRATED UP TO 50 MG MANE + 75 MG NOCTE
     Route: 065
     Dates: start: 201911, end: 202001
  6. MIRTAZAPINE. [Concomitant]
     Active Substance: MIRTAZAPINE
     Indication: ANXIETY
     Dosage: NOCTE
     Route: 065
     Dates: start: 201912, end: 202001
  7. QUETIAPINE. [Concomitant]
     Active Substance: QUETIAPINE
     Dosage: 25 MG MANE
     Route: 065
     Dates: start: 202001, end: 202001
  8. OLANZAPINE. [Suspect]
     Active Substance: OLANZAPINE
     Indication: BIPOLAR DISORDER
     Dosage: 5 MILLIGRAM, TWO TIMES A DAY
     Route: 065
     Dates: start: 202001, end: 202001
  9. QUETIAPINE. [Concomitant]
     Active Substance: QUETIAPINE
     Dosage: QUETIAPINE WAS STARTED AND GRADUALLY TITRATED UP TO 50 MG MANE + 75 MG NOCTE
     Route: 065
     Dates: start: 201911
  10. DOXYCYCLINE. [Concomitant]
     Active Substance: DOXYCYCLINE
     Indication: BRONCHITIS
     Dosage: UNK
     Route: 065
     Dates: start: 201912

REACTIONS (1)
  - Neuroleptic malignant syndrome [Recovered/Resolved]

NARRATIVE: CASE EVENT DATE: 201912
